FAERS Safety Report 4285706-X (Version None)
Quarter: 2004Q1

REPORT INFORMATION
  Report Type: 
  Country: None (occurrence: None)
  Receive Date: 20040203
  Receipt Date: 20040126
  Transmission Date: 20041129
  Serious: Yes (Death)
  Sender: FDA-Public Use
  Company Number: US-JNJFOC-20031202342

PATIENT
  Age: 68 Year
  Sex: Male

DRUGS (2)
  1. DURAGESIC [Suspect]
     Indication: CANCER PAIN
     Dosage: 50 UG/HR, 1 IN 72 HOUR, TRANSDERMAL
     Route: 062
     Dates: start: 20031209, end: 20031210
  2. CHEMOTHERAPY (ANTINEOPLASTIC AGENTS) [Concomitant]

REACTIONS (4)
  - ANXIETY [None]
  - COLD SWEAT [None]
  - DYSPNOEA [None]
  - HYPOVENTILATION [None]
